FAERS Safety Report 9039353 (Version 1)
Quarter: 2013Q1

REPORT INFORMATION
  Report Type: Report from Study
  Country: US (occurrence: US)
  Receive Date: 20130129
  Receipt Date: 20130129
  Transmission Date: 20140127
  Serious: No
  Sender: FDA-Public Use
  Company Number: US-ABBOTT-12P-163-0904684-00

PATIENT
  Age: 57 None
  Sex: Female
  Weight: 136.2 kg

DRUGS (6)
  1. HUMIRA 40 MG/0.8 ML PEN [Suspect]
     Indication: PSORIASIS
     Dates: start: 20120120, end: 20120120
  2. HUMIRA 40 MG/0.8 ML PEN [Suspect]
     Dates: start: 201201, end: 201203
  3. DIOVAN [Concomitant]
     Indication: BLOOD PRESSURE
  4. METFORMIN [Concomitant]
     Indication: DIABETES MELLITUS
  5. ORACEA [Concomitant]
     Indication: PRODUCT USED FOR UNKNOWN INDICATION
  6. UNKNOWN TOPICAL STEROID [Concomitant]
     Indication: PSORIASIS

REACTIONS (14)
  - Sensitivity of teeth [Recovered/Resolved]
  - Sensitivity of teeth [Not Recovered/Not Resolved]
  - Toothache [Not Recovered/Not Resolved]
  - Pyrexia [Recovered/Resolved]
  - Pain [Recovered/Resolved]
  - Cough [Recovered/Resolved]
  - Musculoskeletal stiffness [Recovered/Resolved]
  - Tooth infection [Recovered/Resolved]
  - Dysuria [Recovered/Resolved]
  - Micturition urgency [Recovered/Resolved]
  - Oral herpes [Recovered/Resolved]
  - Herpes dermatitis [Recovered/Resolved]
  - Headache [Not Recovered/Not Resolved]
  - Urinary tract infection [Recovered/Resolved]
